FAERS Safety Report 24280599 (Version 2)
Quarter: 2024Q4

REPORT INFORMATION
  Report Type: Spontaneous
  Country: US (occurrence: US)
  Receive Date: 20240904
  Receipt Date: 20241204
  Transmission Date: 20250115
  Serious: No
  Sender: HIKMA
  Company Number: HIKM2406470

PATIENT

DRUGS (1)
  1. LISDEXAMFETAMINE [Suspect]
     Active Substance: LISDEXAMFETAMINE
     Indication: Product used for unknown indication
     Dosage: UNKNOWN
     Route: 065

REACTIONS (9)
  - Disturbance in attention [Unknown]
  - Emotional distress [Unknown]
  - Condition aggravated [Unknown]
  - Anxiety [Unknown]
  - Irritability [Unknown]
  - Depression [Unknown]
  - Dizziness [Unknown]
  - Feeling abnormal [None]
  - Mood swings [Unknown]
